FAERS Safety Report 21166606 (Version 6)
Quarter: 2022Q4

REPORT INFORMATION
  Report Type: Spontaneous
  Country: BR (occurrence: BR)
  Receive Date: 20220803
  Receipt Date: 20221118
  Transmission Date: 20230112
  Serious: Yes (Hospitalization, Other)
  Sender: FDA-Public Use
  Company Number: BR-GLAXOSMITHKLINE-BR2020AMR011200

PATIENT

DRUGS (3)
  1. BENLYSTA [Suspect]
     Active Substance: BELIMUMAB
     Indication: Systemic lupus erythematosus
     Dosage: 120 MG
     Dates: start: 20190524
  2. PREDNISONE [Concomitant]
     Active Substance: PREDNISONE
     Indication: Product used for unknown indication
     Dosage: 7.5 MG
  3. HYDROXYCHLOROQUINE [Concomitant]
     Active Substance: HYDROXYCHLOROQUINE
     Indication: Product used for unknown indication
     Dosage: 400 MG

REACTIONS (11)
  - Nephrolithiasis [Unknown]
  - Urinary tract pain [Recovering/Resolving]
  - Renal stone removal [Unknown]
  - Ureteric calculus removal [Unknown]
  - Urinary tract discomfort [Recovering/Resolving]
  - Pain [Not Recovered/Not Resolved]
  - Myalgia [Unknown]
  - Drug effect less than expected [Recovering/Resolving]
  - Product dose omission issue [Unknown]
  - Product availability issue [Unknown]
  - Inappropriate schedule of product administration [Unknown]
